FAERS Safety Report 25739911 (Version 1)
Quarter: 2025Q3

REPORT INFORMATION
  Report Type: Other
  Country: EU (occurrence: EU)
  Receive Date: 20250829
  Receipt Date: 20250829
  Transmission Date: 20251020
  Serious: Yes (Life-Threatening, Other)
  Sender: BIOCON
  Company Number: EU-AFSSAPS-CN2024000823

PATIENT

DRUGS (10)
  1. BEVACIZUMAB [Suspect]
     Active Substance: BEVACIZUMAB
     Indication: Hepatocellular carcinoma
     Dosage: 1800 MILLIGRAM, QD (1 TOTAL (15MG/KG)
     Route: 042
     Dates: start: 20240618
  2. TECENTRIQ [Suspect]
     Active Substance: ATEZOLIZUMAB
     Indication: Hepatocellular carcinoma
     Dosage: 1200 MILLIGRAM, QD 1 TOTAL (C1 ON 06/18 - C2 SCHEDULED FOR 09/23 - C3 ON 10/14)
     Route: 042
     Dates: start: 20240618, end: 20240618
  3. JANUMET [Concomitant]
     Active Substance: METFORMIN HYDROCHLORIDE\SITAGLIPTIN PHOSPHATE
     Indication: Type 2 diabetes mellitus
     Route: 048
  4. TAHOR [Concomitant]
     Active Substance: ATORVASTATIN CALCIUM
     Indication: Hypercholesterolaemia
     Dosage: 20 MILLIGRAM, QD (ONCE A DAY)
     Route: 048
  5. ZINC GLUCONATE [Concomitant]
     Active Substance: ZINC GLUCONATE
     Indication: Product used for unknown indication
     Dosage: 15 MILLIGRAM, QD (2 IN MORNING)
     Route: 048
  6. MAGNESIUM GLYCEROPHOSPHATE [Concomitant]
     Active Substance: MAGNESIUM GLYCEROPHOSPHATE
     Indication: Product used for unknown indication
     Dosage: 300 MILLIGRAM, Q8H (1 IN THE MORNING, AT NOON AND IN THE EVENING)
     Route: 065
  7. CHOLECALCIFEROL [Concomitant]
     Active Substance: CHOLECALCIFEROL
     Indication: Product used for unknown indication
     Route: 048
  8. ESCITALOPRAM OXALATE [Concomitant]
     Active Substance: ESCITALOPRAM OXALATE
     Indication: Product used for unknown indication
     Dosage: 10 MILLIGRAM, QD (FILM-COATED TABLET THAT CAN BE DIVIDED), 1 TO 2 PER DAY
     Route: 048
  9. ESOMEPRAZOLE SODIUM [Concomitant]
     Active Substance: ESOMEPRAZOLE SODIUM
     Indication: Product used for unknown indication
     Dosage: 20 MILLIGRAM, QD (1 IN THE EVENING)
     Route: 048
  10. CYANOCOBALAMIN [Concomitant]
     Active Substance: CYANOCOBALAMIN
     Indication: Product used for unknown indication
     Dosage: UNK UNK, 1 MONTH (MONTHLY INJECTIONS)
     Route: 065

REACTIONS (1)
  - Immune-mediated myositis [Recovering/Resolving]

NARRATIVE: CASE EVENT DATE: 20240818
